FAERS Safety Report 11913313 (Version 1)
Quarter: 2016Q1

REPORT INFORMATION
  Report Type: Spontaneous
  Country: FR (occurrence: FR)
  Receive Date: 20160113
  Receipt Date: 20160113
  Transmission Date: 20160526
  Serious: Yes (Other)
  Sender: FDA-Public Use
  Company Number: FR-INCYTE CORPORATION-2015IN006883

PATIENT
  Age: 59 Year
  Sex: Female
  Weight: 61 kg

DRUGS (7)
  1. CRESTOR [Concomitant]
     Active Substance: ROSUVASTATIN CALCIUM
     Indication: PRODUCT USED FOR UNKNOWN INDICATION
     Dosage: 5 MG, UNK
     Route: 048
  2. JAKAFI [Suspect]
     Active Substance: RUXOLITINIB
     Indication: GRAFT VERSUS HOST DISEASE
     Dosage: 2 DF, QD
     Route: 065
     Dates: start: 20151008, end: 20151202
  3. TAREG [Concomitant]
     Active Substance: VALSARTAN
     Indication: PRODUCT USED FOR UNKNOWN INDICATION
     Dosage: 80 UKN, UNK
     Route: 048
  4. JAKAFI [Suspect]
     Active Substance: RUXOLITINIB
     Indication: TRANSPLANT REJECTION
  5. JAKAFI [Suspect]
     Active Substance: RUXOLITINIB
     Indication: SCLERODERMA
  6. ZITHROMAX [Concomitant]
     Active Substance: AZITHROMYCIN DIHYDRATE
     Indication: PRODUCT USED FOR UNKNOWN INDICATION
     Dosage: 250 UKN, UNK
     Route: 048
  7. DELURSAN [Concomitant]
     Active Substance: URSODIOL
     Indication: PRODUCT USED FOR UNKNOWN INDICATION
     Dosage: 500 UKN, UNK
     Route: 048

REACTIONS (4)
  - Bronchitis [Recovering/Resolving]
  - Product use issue [Unknown]
  - Immunosuppression [Unknown]
  - Infection [Unknown]

NARRATIVE: CASE EVENT DATE: 20151125
